FAERS Safety Report 8444368-8 (Version None)
Quarter: 2012Q2

REPORT INFORMATION
  Report Type: 
  Country: None (occurrence: None)
  Receive Date: 20120618
  Receipt Date: 20120614
  Transmission Date: 20120825
  Serious: Yes (Hospitalization)
  Sender: FDA-Public Use
  Company Number: US-PFIZER INC-2012144881

PATIENT
  Sex: Female
  Weight: 79.365 kg

DRUGS (6)
  1. LISINOPRIL [Concomitant]
     Indication: BLOOD PRESSURE ABNORMAL
     Dosage: UNK
  2. COREG [Concomitant]
     Indication: BLOOD PRESSURE ABNORMAL
     Dosage: UNK
  3. PREDNISONE [Concomitant]
     Indication: PULMONARY FIBROSIS
     Dosage: UNK
     Route: 055
  4. CHANTIX [Suspect]
     Indication: SMOKING CESSATION THERAPY
     Dosage: 0.5 MG, DAILY
     Route: 048
     Dates: start: 20100101, end: 20100101
  5. ALBUTEROL [Concomitant]
     Indication: PULMONARY FIBROSIS
     Dosage: UNK
  6. SYMBICORT [Concomitant]
     Indication: PULMONARY FIBROSIS
     Dosage: UNK

REACTIONS (3)
  - COMA [None]
  - WEIGHT DECREASED [None]
  - FATIGUE [None]
